FAERS Safety Report 8978971 (Version 4)
Quarter: 2013Q1

REPORT INFORMATION
  Report Type: Spontaneous
  Country: US (occurrence: US)
  Receive Date: 20121220
  Receipt Date: 20130124
  Transmission Date: 20140127
  Serious: Yes (Death, Hospitalization, Other)
  Sender: FDA-Public Use
  Company Number: US-JNJFOC-20121207549

PATIENT
  Age: 21 None
  Sex: Male
  Weight: 92.53 kg

DRUGS (6)
  1. REMICADE [Suspect]
     Indication: CROHN^S DISEASE
     Dosage: START DATE: SINCE HE WAS 11
     Route: 042
     Dates: start: 200201, end: 20120824
  2. REMICADE [Suspect]
     Indication: CROHN^S DISEASE
     Route: 042
     Dates: start: 2001
  3. ASACOL [Concomitant]
     Indication: CROHN^S DISEASE
  4. BENTYL [Concomitant]
     Indication: MUSCLE SPASMS
  5. DOXYCYCLINE [Concomitant]
  6. IMODIUM AD [Concomitant]
     Indication: DIARRHOEA

REACTIONS (4)
  - Death [Fatal]
  - Small intestine adenocarcinoma [Unknown]
  - Peritoneal abscess [Unknown]
  - Pneumonia [Recovered/Resolved]
